FAERS Safety Report 23090406 (Version 2)
Quarter: 2024Q1

REPORT INFORMATION
  Report Type: Spontaneous
  Country: US (occurrence: US)
  Receive Date: 20231020
  Receipt Date: 20240119
  Transmission Date: 20240410
  Serious: Yes (Disabling, Other)
  Sender: FDA-Public Use
  Company Number: US-ORGANON-O2310USA002184

PATIENT
  Sex: Male

DRUGS (4)
  1. SINGULAIR [Suspect]
     Active Substance: MONTELUKAST SODIUM
     Indication: Asthma
     Dosage: UNK
     Route: 048
     Dates: start: 1998, end: 2022
  2. SINGULAIR [Suspect]
     Active Substance: MONTELUKAST SODIUM
     Dosage: 10 MG TABLET
     Route: 048
     Dates: start: 2010, end: 2012
  3. SINGULAIR [Suspect]
     Active Substance: MONTELUKAST SODIUM
     Dosage: 10 MG TABLET
     Route: 048
     Dates: start: 2012, end: 2015
  4. SINGULAIR [Suspect]
     Active Substance: MONTELUKAST SODIUM
     Dosage: 10 MG TABLET
     Route: 048
     Dates: start: 2015, end: 2022

REACTIONS (18)
  - Neuropsychological symptoms [Not Recovered/Not Resolved]
  - Anxiety [Not Recovered/Not Resolved]
  - Depression [Not Recovered/Not Resolved]
  - Attention deficit hyperactivity disorder [Not Recovered/Not Resolved]
  - Bipolar disorder [Not Recovered/Not Resolved]
  - Memory impairment [Not Recovered/Not Resolved]
  - Disturbance in attention [Not Recovered/Not Resolved]
  - Insomnia [Not Recovered/Not Resolved]
  - Mania [Not Recovered/Not Resolved]
  - Irritability [Not Recovered/Not Resolved]
  - Suicidal ideation [Not Recovered/Not Resolved]
  - Nightmare [Not Recovered/Not Resolved]
  - Aggression [Not Recovered/Not Resolved]
  - Panic disorder [Not Recovered/Not Resolved]
  - Anger [Recovering/Resolving]
  - Generalised anxiety disorder [Recovering/Resolving]
  - Obsessive-compulsive disorder [Recovering/Resolving]
  - Intentional self-injury [Recovered/Resolved]
